FAERS Safety Report 24162073 (Version 1)
Quarter: 2024Q3

REPORT INFORMATION
  Report Type: Spontaneous
  Country: US (occurrence: None)
  Receive Date: 20240731
  Receipt Date: 20240731
  Transmission Date: 20241016
  Serious: No
  Sender: Public
  Company Number: None

PATIENT
  Age: 71 Year
  Sex: Male

DRUGS (1)
  1. GAMUNEX-C [Suspect]
     Active Substance: HUMAN IMMUNOGLOBULIN G
     Indication: Immunodeficiency common variable
     Dosage: 50 G GRAM(S) EVERY 28 DAYS INTRAVENOUS
     Route: 042
     Dates: start: 20240724

REACTIONS (5)
  - Influenza like illness [None]
  - Neuropathy peripheral [None]
  - Dizziness [None]
  - Balance disorder [None]
  - Infusion related reaction [None]

NARRATIVE: CASE EVENT DATE: 20240724
